FAERS Safety Report 9216295 (Version 2)
Quarter: 2013Q2

REPORT INFORMATION
  Report Type: Report from Study
  Country: BR (occurrence: BR)
  Receive Date: 20130408
  Receipt Date: 20130603
  Transmission Date: 20140414
  Serious: Yes (Death, Congenital Anomaly)
  Sender: FDA-Public Use
  Company Number: PHHO2013BR004769

PATIENT
  Sex: Male
  Weight: 2 kg

DRUGS (2)
  1. CERTICAN [Suspect]
     Indication: HEPATITIS C
     Dosage: FOETAL DRUG EXPOSURE VIA FATHER
     Route: 065
  2. PULMINIQ [Suspect]
     Dosage: FOETAL DRUG EXPOSURE VIA FATHER
     Route: 065

REACTIONS (3)
  - Congenital hydronephrosis [Fatal]
  - Urethral valves [Unknown]
  - Exposure via father [Unknown]
